FAERS Safety Report 6126299-1 (Version None)
Quarter: 2009Q1

REPORT INFORMATION
  Report Type: 
  Country: None (occurrence: None)
  Receive Date: 20090320
  Receipt Date: 20090311
  Transmission Date: 20090719
  Serious: Yes (Hospitalization)
  Sender: FDA-Public Use
  Company Number: US-AVENTIS-200911256EU

PATIENT
  Age: 73 Year
  Sex: Female

DRUGS (15)
  1. LASIX [Suspect]
     Dosage: DOSE: UNK
     Route: 048
     Dates: start: 20040501, end: 20040615
  2. AMLOR [Suspect]
     Dosage: DOSE: UNK
     Route: 048
     Dates: start: 20040501, end: 20040615
  3. CHONDROSULF [Concomitant]
     Dates: start: 19970101, end: 20040615
  4. ADVIL [Concomitant]
     Dates: start: 20010101, end: 20040615
  5. DOLIPRANE [Concomitant]
  6. ZYLORIC [Concomitant]
     Dates: start: 19970101
  7. ATHYMIL [Concomitant]
     Dates: start: 20010101
  8. STILNOX                            /00914901/ [Concomitant]
  9. ARESTAL [Concomitant]
     Dates: start: 20040101
  10. MOPRAL [Concomitant]
     Dates: start: 20030404
  11. TARDYFERON                         /00023503/ [Concomitant]
     Dates: start: 20030404
  12. DIFFU K [Concomitant]
     Dates: start: 20031223, end: 20040615
  13. ENTOCORT EC [Concomitant]
     Dates: start: 20031223, end: 20040615
  14. DIPENTUM [Concomitant]
     Dates: start: 20031223
  15. EXEMESTANE [Concomitant]
     Route: 048
     Dates: start: 20030206

REACTIONS (1)
  - OEDEMA [None]
